FAERS Safety Report 9031903 (Version 3)
Quarter: 2013Q4

REPORT INFORMATION
  Report Type: Spontaneous
  Country: FR (occurrence: FR)
  Receive Date: 20130125
  Receipt Date: 20131105
  Transmission Date: 20140711
  Serious: Yes (Other)
  Sender: FDA-Public Use
  Company Number: FR-BRISTOL-MYERS SQUIBB COMPANY-17293119

PATIENT
  Age: 71 Year
  Sex: Female

DRUGS (8)
  1. SUSTIVA [Suspect]
     Indication: HIV INFECTION
     Route: 048
  2. ALDACTONE [Suspect]
     Indication: HYPERTENSION
     Route: 048
  3. LUCENTIS [Suspect]
     Indication: AGE-RELATED MACULAR DEGENERATION
     Dosage: 1DF: 10 MG/ML SOLUTION FOR INJECTION
  4. CARTEOL [Suspect]
     Indication: AGE-RELATED MACULAR DEGENERATION
  5. TRAVATAN [Suspect]
  6. MONO-TILDIEM [Suspect]
     Route: 048
  7. CRESTOR [Suspect]
  8. KIVEXA [Suspect]
     Indication: HIV INFECTION
     Route: 048

REACTIONS (1)
  - Hypertrophic cardiomyopathy [Not Recovered/Not Resolved]
